FAERS Safety Report 17902670 (Version 5)
Quarter: 2021Q2

REPORT INFORMATION
  Report Type: Report from Study
  Country: DE (occurrence: DE)
  Receive Date: 20200616
  Receipt Date: 20210605
  Transmission Date: 20210717
  Serious: Yes (Death, Other)
  Sender: FDA-Public Use
  Company Number: NVSC2020DE167221

PATIENT
  Age: 67 Year
  Sex: Male
  Weight: 61 kg

DRUGS (1)
  1. COSENTYX [Suspect]
     Active Substance: SECUKINUMAB
     Indication: PRODUCT USED FOR UNKNOWN INDICATION
     Dosage: 300 MG (2X150), QMO
     Route: 065
     Dates: start: 20170601, end: 202002

REACTIONS (2)
  - Death [Fatal]
  - Primary amyloidosis [Unknown]

NARRATIVE: CASE EVENT DATE: 201907
